FAERS Safety Report 8470820-5 (Version None)
Quarter: 2012Q2

REPORT INFORMATION
  Report Type: 
  Country: None (occurrence: None)
  Receive Date: 20120323
  Receipt Date: 20111012
  Transmission Date: 20120825
  Serious: Yes (Hospitalization)
  Sender: FDA-Public Use
  Company Number: 163-21880-11101453

PATIENT
  Age: 59 Year
  Sex: Male
  Weight: 46.2669 kg

DRUGS (9)
  1. REVLIMID [Suspect]
     Indication: MULTIPLE MYELOMA
     Dosage: 20 MG, DAYS 1-21, PO
     Route: 048
     Dates: start: 20110819, end: 20110921
  2. ASPIRIN [Concomitant]
  3. NEURONTIN [Concomitant]
  4. PAXIL [Concomitant]
  5. DEXAMETHASONE [Concomitant]
  6. FLOMAX [Concomitant]
  7. VITAMIN B12 [Concomitant]
  8. REVLIMID [Suspect]
  9. LEVOTHYROXINE SODIUM [Concomitant]

REACTIONS (4)
  - ASTHENIA [None]
  - WEIGHT DECREASED [None]
  - ABASIA [None]
  - DECREASED APPETITE [None]
